FAERS Safety Report 4691834-7 (Version None)
Quarter: 2005Q2

REPORT INFORMATION
  Report Type: 
  Country: None (occurrence: None)
  Receive Date: 20050615
  Receipt Date: 20050615
  Transmission Date: 20051028
  Serious: Yes (Other)
  Sender: FDA-Public Use
  Company Number: None

PATIENT
  Age: 71 Year
  Sex: Female
  Weight: 225.8913 kg

DRUGS (5)
  1. ALDARA [Suspect]
     Indication: ACTINIC KERATOSIS
     Dosage: 2 PACKETS TWICE A WEEK
     Dates: start: 20050401, end: 20050609
  2. ATENOLOL [Concomitant]
  3. SYNTHROID [Concomitant]
  4. ZEDIA [Concomitant]
  5. LIBRIUM [Concomitant]

REACTIONS (3)
  - ALANINE AMINOTRANSFERASE INCREASED [None]
  - ASPARTATE AMINOTRANSFERASE INCREASED [None]
  - HEPATIC ENZYME INCREASED [None]
